FAERS Safety Report 8088125-3 (Version None)
Quarter: 2012Q1

REPORT INFORMATION
  Report Type: 
  Country: None (occurrence: None)
  Receive Date: 20120131
  Receipt Date: 20120124
  Transmission Date: 20120608
  Serious: No
  Sender: FDA-Public Use
  Company Number: US-BIOGENIDEC-2010BI032405

PATIENT
  Sex: Male

DRUGS (1)
  1. TYSABRI [Suspect]
     Indication: MULTIPLE SCLEROSIS
     Route: 042
     Dates: start: 20100505, end: 20111019

REACTIONS (7)
  - FALL [None]
  - GAIT DISTURBANCE [None]
  - HEAT EXHAUSTION [None]
  - HEADACHE [None]
  - PNEUMONIA [None]
  - TREMOR [None]
  - HYPOAESTHESIA [None]
